FAERS Safety Report 12928379 (Version 2)
Quarter: 2016Q4

REPORT INFORMATION
  Report Type: Spontaneous
  Country: CA (occurrence: CA)
  Receive Date: 20161110
  Receipt Date: 20161118
  Transmission Date: 20170207
  Serious: Yes (Other)
  Sender: FDA-Public Use
  Company Number: CA-TEVA-711260ACC

PATIENT
  Age: 1 Year
  Sex: Male

DRUGS (3)
  1. NOVO-SALBUTAMOL HFA [Suspect]
     Active Substance: ALBUTEROL
     Indication: PRODUCT USED FOR UNKNOWN INDICATION
     Route: 065
  2. PREDNISONE. [Concomitant]
     Active Substance: PREDNISONE
  3. FLOVENT [Suspect]
     Active Substance: FLUTICASONE PROPIONATE
     Indication: PRODUCT USED FOR UNKNOWN INDICATION
     Dosage: STRENGTH: 50MCG
     Route: 065

REACTIONS (6)
  - Product label confusion [Unknown]
  - Drug ineffective [Unknown]
  - Product packaging issue [Unknown]
  - Dyspnoea [Unknown]
  - Wrong drug administered [Unknown]
  - Drug dispensing error [Unknown]

NARRATIVE: CASE EVENT DATE: 201610
